FAERS Safety Report 4899221-3 (Version None)
Quarter: 2006Q1

REPORT INFORMATION
  Report Type: 
  Country: None (occurrence: None)
  Receive Date: 20060202
  Receipt Date: 20060123
  Transmission Date: 20060701
  Serious: Yes (Hospitalization)
  Sender: FDA-Public Use
  Company Number: AU-ROCHE-433139

PATIENT
  Age: 23 Year
  Sex: Female

DRUGS (1)
  1. LARIAM [Suspect]
     Indication: MALARIA
     Route: 048
     Dates: start: 20041022, end: 20041105

REACTIONS (8)
  - ALOPECIA [None]
  - CARDIAC MURMUR [None]
  - DIZZINESS [None]
  - HAEMOLYTIC ANAEMIA [None]
  - HEADACHE [None]
  - MYALGIA [None]
  - NAUSEA [None]
  - VOMITING [None]
